FAERS Safety Report 5194744-4 (Version None)
Quarter: 2006Q4

REPORT INFORMATION
  Report Type: 
  Country: None (occurrence: None)
  Receive Date: 20061229
  Receipt Date: 20061113
  Transmission Date: 20070319
  Serious: No
  Sender: FDA-Public Use
  Company Number: SE-BAXTER-2006BH014578

PATIENT
  Age: 25 Year
  Sex: Female

DRUGS (2)
  1. KIOVIG [Suspect]
     Indication: MYASTHENIA GRAVIS
     Dosage: DOSE UNIT:UNKNOWN
     Route: 065
     Dates: start: 20061023, end: 20061023
  2. KIOVIG [Suspect]
     Indication: INTENTIONAL DRUG MISUSE
     Dosage: DOSE UNIT:UNKNOWN
     Route: 065
     Dates: start: 20061023, end: 20061023

REACTIONS (2)
  - APPLICATION SITE PRURITUS [None]
  - APPLICATION SITE REACTION [None]
